FAERS Safety Report 7374008-0 (Version None)
Quarter: 2011Q1

REPORT INFORMATION
  Report Type: 
  Country: None (occurrence: None)
  Receive Date: 20110325
  Receipt Date: 20110321
  Transmission Date: 20110831
  Serious: Yes (Other)
  Sender: FDA-Public Use
  Company Number: US-PFIZER INC-2011062247

PATIENT
  Sex: Male
  Weight: 117.91 kg

DRUGS (2)
  1. LYRICA [Suspect]
     Indication: DIABETIC NEUROPATHY
     Dosage: 50 MG, 3X/DAY
     Route: 048
     Dates: end: 20110319
  2. BETASERON [Concomitant]
     Dosage: UNK

REACTIONS (2)
  - DYSARTHRIA [None]
  - SWELLING FACE [None]
